FAERS Safety Report 5793355-7 (Version None)
Quarter: 2008Q2

REPORT INFORMATION
  Report Type: 
  Country: None (occurrence: None)
  Receive Date: 20080627
  Receipt Date: 20080619
  Transmission Date: 20081010
  Serious: Yes (Disabling)
  Sender: FDA-Public Use
  Company Number: B0521304A

PATIENT
  Age: 35 Year
  Sex: Female
  Weight: 85 kg

DRUGS (1)
  1. ZOFRAN [Suspect]
     Indication: PROPHYLAXIS OF NAUSEA AND VOMITING
     Route: 042

REACTIONS (3)
  - DRUG EXPOSURE DURING PREGNANCY [None]
  - LIVE BIRTH [None]
  - PREMATURE RUPTURE OF MEMBRANES [None]
